FAERS Safety Report 8908661 (Version 1)
Quarter: 2012Q4

REPORT INFORMATION
  Report Type: 
  Country: GB (occurrence: GB)
  Receive Date: 20121114
  Receipt Date: 20121114
  Transmission Date: 20130627
  Serious: Yes (Other)
  Sender: FDA-Public Use
  Company Number: GB-ROCHE-1154656

PATIENT
  Age: 46 Year
  Sex: Female
  Weight: 101.6 kg

DRUGS (2)
  1. XENICAL [Suspect]
     Indication: WEIGHT LOSS POOR
     Route: 048
     Dates: start: 20120925, end: 20121022
  2. LAMICTAL [Concomitant]
     Route: 065

REACTIONS (3)
  - Constipation [Not Recovered/Not Resolved]
  - Diarrhoea [Recovered/Resolved]
  - Gastrooesophageal reflux disease [Not Recovered/Not Resolved]
